FAERS Safety Report 22098057 (Version 1)
Quarter: 2023Q1

REPORT INFORMATION
  Report Type: Spontaneous
  Country: US (occurrence: US)
  Receive Date: 20230315
  Receipt Date: 20230315
  Transmission Date: 20230417
  Serious: No
  Sender: FDA-Public Use
  Company Number: US-ADVANZ PHARMA-202303001913

PATIENT

DRUGS (3)
  1. HYDROXYCHLOROQUINE SULFATE [Interacting]
     Active Substance: HYDROXYCHLOROQUINE SULFATE
     Indication: Product used for unknown indication
     Dosage: UNK (MPID: 54165)
     Route: 065
  2. HYDROXYCHLOROQUINE SULFATE [Interacting]
     Active Substance: HYDROXYCHLOROQUINE SULFATE
     Dosage: UNK, RESTARTED (MPID: 54165)
     Route: 065
  3. HUMIRA [Interacting]
     Active Substance: ADALIMUMAB
     Indication: Rheumatoid arthritis
     Dosage: UNK, CITRATE FREE (SINGLE DOSE PEN)
     Route: 058
     Dates: start: 20230115

REACTIONS (3)
  - Pain [Recovering/Resolving]
  - Feeling abnormal [Recovering/Resolving]
  - Drug interaction [Recovering/Resolving]
